FAERS Safety Report 9029754 (Version 1)
Quarter: 2013Q1

REPORT INFORMATION
  Report Type: Report from Study
  Country: DE (occurrence: DE)
  Receive Date: 20130124
  Receipt Date: 20130124
  Transmission Date: 20140127
  Serious: Yes (Other)
  Sender: FDA-Public Use
  Company Number: DE-UCBSA-010374

PATIENT
  Age: 32 Year
  Sex: Female
  Weight: 89 kg

DRUGS (6)
  1. CERTOLIZUMAB PEGOL [Suspect]
     Indication: RHEUMATOID ARTHRITIS
     Route: 058
     Dates: start: 20100120, end: 20100301
  2. PREDNISOLONE [Concomitant]
     Indication: RHEUMATOID ARTHRITIS
     Route: 048
     Dates: start: 20000404, end: 201001
  3. PROCAIN-BASE-INFUSION [Concomitant]
     Indication: PAIN
     Dates: start: 201002
  4. FLUPIRTINE [Concomitant]
     Indication: PAIN
     Route: 048
  5. ARCOXIA [Concomitant]
     Indication: RHEUMATOID ARTHRITIS
     Dates: start: 20081013
  6. ARCOXIA [Concomitant]
     Indication: RHEUMATOID ARTHRITIS
     Dates: start: 20100301

REACTIONS (1)
  - Anaphylactic reaction [Recovered/Resolved]
